FAERS Safety Report 6961743-9 (Version None)
Quarter: 2010Q3

REPORT INFORMATION
  Report Type: 
  Country: None (occurrence: None)
  Receive Date: 20100901
  Receipt Date: 20100820
  Transmission Date: 20110219
  Serious: No
  Sender: FDA-Public Use
  Company Number: US-AMGEN-KDL432709

PATIENT
  Age: 42 Year
  Sex: Female

DRUGS (1)
  1. PROLIA [Suspect]
     Indication: PRODUCT USED FOR UNKNOWN INDICATION
     Route: 058
     Dates: start: 20100812

REACTIONS (3)
  - INFLUENZA LIKE ILLNESS [None]
  - MYALGIA [None]
  - NAUSEA [None]
